FAERS Safety Report 8383595-5 (Version None)
Quarter: 2012Q1

REPORT INFORMATION
  Report Type: 
  Country: None (occurrence: None)
  Receive Date: 20120323
  Receipt Date: 20110317
  Transmission Date: 20120608
  Serious: Yes (Other)
  Sender: FDA-Public Use
  Company Number: 163-21880-11032366

PATIENT
  Age: 69 Year
  Sex: Female

DRUGS (4)
  1. REVLIMID [Suspect]
     Indication: MULTIPLE MYELOMA
     Dosage: 15 MG, /21, PO
     Route: 048
     Dates: start: 20101019
  2. WARFARIN SODIUM [Concomitant]
  3. DILTIAZEM [Concomitant]
  4. DEXAMETHASONE [Concomitant]

REACTIONS (2)
  - DIZZINESS [None]
  - CHILLS [None]
